FAERS Safety Report 5651429-5 (Version None)
Quarter: 2008Q1

REPORT INFORMATION
  Report Type: 
  Country: None (occurrence: None)
  Receive Date: 20080305
  Receipt Date: 20080225
  Transmission Date: 20080703
  Serious: Yes (Other)
  Sender: FDA-Public Use
  Company Number: JP-ELI_LILLY_AND_COMPANY-JP200801006040

PATIENT
  Sex: Female
  Weight: 58 kg

DRUGS (9)
  1. EVISTA [Suspect]
     Indication: OSTEOPOROSIS
     Dosage: 60 MG, DAILY (1/D)
     Route: 048
     Dates: start: 20070806, end: 20080106
  2. BENET /JPN/ [Concomitant]
     Indication: OSTEOPOROSIS
     Dosage: 2.5 MG, DAILY (1/D)
     Route: 048
     Dates: start: 20061101, end: 20070805
  3. ONEALFA [Concomitant]
     Indication: OSTEOPOROSIS
     Dosage: 0.25 UG, 2/D
     Route: 048
     Dates: start: 20070806, end: 20080106
  4. BUP-4 [Concomitant]
     Indication: POLLAKIURIA
     Dosage: 20 MG, DAILY (1/D)
     Route: 048
     Dates: start: 20061211, end: 20070304
  5. BUP-4 [Concomitant]
     Dosage: 20 MG, 2/D
     Route: 048
     Dates: start: 20070305
  6. GLYSENNID [Concomitant]
     Indication: CONSTIPATION
     Dosage: 24 MG, DAILY (1/D)
     Route: 048
     Dates: start: 19910313
  7. ALOSENN                            /00476901/ [Concomitant]
     Indication: CONSTIPATION
     Dosage: 0.5 G, 2/D
     Route: 048
     Dates: start: 19910410, end: 19941004
  8. ALOSENN                            /00476901/ [Concomitant]
     Dosage: 1 G, 2/D
     Route: 048
     Dates: start: 19941005
  9. MEILAX [Concomitant]
     Indication: INSOMNIA
     Dosage: 1 MG, DAILY (1/D)
     Route: 048
     Dates: start: 20070305, end: 20070610

REACTIONS (1)
  - ARTHRALGIA [None]
